FAERS Safety Report 7627710-7 (Version None)
Quarter: 2011Q3

REPORT INFORMATION
  Report Type: 
  Country: None (occurrence: None)
  Receive Date: 20110721
  Receipt Date: 20110714
  Transmission Date: 20111222
  Serious: Yes (Other)
  Sender: FDA-Public Use
  Company Number: CN-PFIZER INC-2011161478

PATIENT
  Age: 60 Year
  Sex: Female

DRUGS (1)
  1. XALATAN [Suspect]
     Dosage: 1 DROP DAILY EVERY NIGHT

REACTIONS (2)
  - INTRAOCULAR PRESSURE INCREASED [None]
  - DRUG EFFECT DECREASED [None]
